FAERS Safety Report 10427106 (Version 1)
Quarter: 2014Q3

REPORT INFORMATION
  Report Type: Spontaneous
  Country: US (occurrence: None)
  Receive Date: 20140725
  Receipt Date: 20140725
  Transmission Date: 20150326
  Serious: No
  Sender: FDA-Public Use
  Company Number: AP356-00915-SPO-US

PATIENT
  Age: 54 Year
  Sex: Female

DRUGS (2)
  1. BELVIQ [Suspect]
     Active Substance: LORCASERIN HYDROCHLORIDE
     Indication: WEIGHT DECREASED
     Route: 048
     Dates: start: 201401, end: 201403
  2. MOBI C (MELOXI CAM ) [Concomitant]

REACTIONS (1)
  - Thyroid neoplasm [None]

NARRATIVE: CASE EVENT DATE: 201403
